FAERS Safety Report 7004713-7 (Version None)
Quarter: 2010Q3

REPORT INFORMATION
  Report Type: 
  Country: None (occurrence: None)
  Receive Date: 20100917
  Receipt Date: 20100902
  Transmission Date: 20110219
  Serious: Yes (Hospitalization)
  Sender: FDA-Public Use
  Company Number: TCI2010A00457

PATIENT
  Sex: Female

DRUGS (12)
  1. ACTOS [Suspect]
     Indication: DIABETES MELLITUS
     Dosage: 7.5 MG (7.5 MG, 1 IN 1 D) PER ORAL
     Route: 048
     Dates: end: 20091218
  2. MERCAZOLE (THIAMAZOLE) [Concomitant]
  3. SIMVASTATIN [Concomitant]
  4. OPALMON (LIMAPROST) [Concomitant]
  5. METHYCOHAL (MECOBALAMIN) [Concomitant]
  6. ALFAROL (ALFACALCIDOL) [Concomitant]
  7. NORVASC [Concomitant]
  8. EUGLUCON (GLISENCLAMIDE) [Concomitant]
  9. TOLTERODINE TARTRATE [Concomitant]
  10. SEIBULE (MIGLITOL) [Concomitant]
  11. LOXONIN (LOXOPROFEN SODIUM) [Concomitant]
  12. MUCOSTA (REBAMIPIDE) [Concomitant]

REACTIONS (5)
  - ACCIDENT [None]
  - ACTIVITIES OF DAILY LIVING IMPAIRED [None]
  - FALL [None]
  - FEMORAL NECK FRACTURE [None]
  - GLYCOSYLATED HAEMOGLOBIN INCREASED [None]
